FAERS Safety Report 10867053 (Version 2)
Quarter: 2015Q2

REPORT INFORMATION
  Report Type: Spontaneous
  Country: FR (occurrence: FR)
  Receive Date: 20150225
  Receipt Date: 20150602
  Transmission Date: 20150821
  Serious: No
  Sender: FDA-Public Use
  Company Number: FR-JNJFOC-20150209686

PATIENT
  Sex: Female
  Weight: 45 kg

DRUGS (1)
  1. DUROGESIC [Suspect]
     Active Substance: FENTANYL
     Indication: PAIN
     Route: 062
     Dates: start: 20150211, end: 20150226

REACTIONS (1)
  - Drug prescribing error [Unknown]
